FAERS Safety Report 5922950-7 (Version None)
Quarter: 2008Q4

REPORT INFORMATION
  Report Type: 
  Country: None (occurrence: None)
  Receive Date: 20081017
  Receipt Date: 20081013
  Transmission Date: 20090506
  Serious: Yes (Other)
  Sender: FDA-Public Use
  Company Number: US-GILEAD-2008-0018546

PATIENT
  Sex: Male

DRUGS (1)
  1. ADEFOVIR DIPIVOXIL KIT [Suspect]

REACTIONS (1)
  - DRUG INEFFECTIVE [None]
